FAERS Safety Report 9688862 (Version 2)
Quarter: 2014Q1

REPORT INFORMATION
  Report Type: Spontaneous
  Country: US (occurrence: US)
  Receive Date: 20131114
  Receipt Date: 20140320
  Transmission Date: 20141002
  Serious: Yes (Life-Threatening, Hospitalization)
  Sender: FDA-Public Use
  Company Number: US-BAYER-2013-136997

PATIENT
  Age: 29 Year
  Sex: Female
  Weight: 61.22 kg

DRUGS (4)
  1. MIRENA [Suspect]
     Indication: CONTRACEPTION
     Dosage: 20 MCG/24HR, CONT
     Route: 015
     Dates: start: 20110512, end: 20110624
  2. AUGMENTIN [Concomitant]
     Dosage: 875-125 2 TIMES A DAY
  3. KEFLEX [Concomitant]
     Dosage: 500 MG, QID
  4. BENZACLIN [Concomitant]
     Dosage: APPLY TWO TIMES A DAY

REACTIONS (10)
  - Uterine perforation [None]
  - Pelvic pain [None]
  - Abdominal pain lower [None]
  - Pain [None]
  - General physical health deterioration [None]
  - Anxiety [None]
  - Anhedonia [None]
  - Injury [None]
  - Emotional distress [None]
  - Device dislocation [None]
